FAERS Safety Report 14600646 (Version 2)
Quarter: 2018Q1

REPORT INFORMATION
  Report Type: Spontaneous
  Country: BR (occurrence: BR)
  Receive Date: 20180305
  Receipt Date: 20180313
  Transmission Date: 20180509
  Serious: Yes (Other)
  Sender: FDA-Public Use
  Company Number: PHHY2018BR034476

PATIENT
  Age: 36 Year
  Sex: Male
  Weight: 67 kg

DRUGS (5)
  1. TEGRETOL [Suspect]
     Active Substance: CARBAMAZEPINE
     Indication: SEIZURE
     Dosage: 2 DF, TID
     Route: 065
  2. DEPAKENE [Concomitant]
     Active Substance: VALPROIC ACID
     Dosage: 1 DF, TID
     Route: 048
     Dates: start: 20180219
  3. NEULEPTIL [Concomitant]
     Active Substance: PERICIAZINE
     Indication: SEIZURE
     Dosage: 50 DF, QD
     Route: 048
  4. DEPAKENE [Concomitant]
     Active Substance: VALPROIC ACID
     Indication: SEIZURE
     Dosage: 2 DF, TID (TWO TABLETS IN MORNING , 02 TABLETS IN AFTERNOON AND TWO TABLETS IN EVENING)
     Route: 048
  5. GARDENAL [Concomitant]
     Active Substance: PHENOBARBITAL
     Indication: SEIZURE
     Dosage: 1 DF, QD
     Route: 048

REACTIONS (8)
  - Seizure [Recovering/Resolving]
  - Fall [Recovering/Resolving]
  - Face injury [Recovering/Resolving]
  - Chest injury [Recovering/Resolving]
  - Tremor [Recovering/Resolving]
  - Gait disturbance [Recovering/Resolving]
  - Feeling abnormal [Recovering/Resolving]
  - Drug ineffective [Recovering/Resolving]

NARRATIVE: CASE EVENT DATE: 201802
